FAERS Safety Report 6500755-6 (Version None)
Quarter: 2009Q4

REPORT INFORMATION
  Report Type: 
  Country: None (occurrence: None)
  Receive Date: 20091216
  Receipt Date: 20090209
  Transmission Date: 20100525
  Serious: No
  Sender: FDA-Public Use
  Company Number: A0767566A

PATIENT
  Age: 49 Year
  Sex: Female

DRUGS (2)
  1. COMMIT [Suspect]
  2. NICORETTE [Suspect]
     Dates: start: 20090208, end: 20090209

REACTIONS (1)
  - POOR QUALITY SLEEP [None]
